FAERS Safety Report 14575234 (Version 1)
Quarter: 2018Q1

REPORT INFORMATION
  Report Type: Spontaneous
  Country: US (occurrence: US)
  Receive Date: 20180227
  Receipt Date: 20180227
  Transmission Date: 20180509
  Serious: No
  Sender: FDA-Public Use
  Company Number: US-ROCHE-2041862

PATIENT
  Sex: Female

DRUGS (10)
  1. METOPROLOL SANDOZ [Concomitant]
     Active Substance: METOPROLOL
     Route: 065
  2. LISINOPRIL HCTZ [Concomitant]
     Active Substance: HYDROCHLOROTHIAZIDE\LISINOPRIL
     Route: 065
  3. FLUTICASONE. [Concomitant]
     Active Substance: FLUTICASONE
     Route: 065
  4. XOLAIR [Suspect]
     Active Substance: OMALIZUMAB
     Indication: IDIOPATHIC URTICARIA
     Route: 058
     Dates: start: 20170809
  5. LISINOPRIL. [Concomitant]
     Active Substance: LISINOPRIL
     Route: 065
  6. TOPIRAMATE. [Concomitant]
     Active Substance: TOPIRAMATE
     Route: 065
  7. ZOLPIDEM TARTRATE. [Concomitant]
     Active Substance: ZOLPIDEM TARTRATE
     Route: 065
  8. NEOMYCIN. [Concomitant]
     Active Substance: NEOMYCIN
     Route: 065
  9. OMEPRAZOLE ALMUS [Concomitant]
     Active Substance: OMEPRAZOLE
     Route: 065
  10. POLYETHYLENE (UNK INGREDIENTS) [Concomitant]

REACTIONS (3)
  - Malaise [Unknown]
  - Gastric disorder [Unknown]
  - Fatigue [Unknown]
